FAERS Safety Report 18049638 (Version 3)
Quarter: 2020Q3

REPORT INFORMATION
  Report Type: Spontaneous
  Country: US (occurrence: US)
  Receive Date: 20200721
  Receipt Date: 20200805
  Transmission Date: 20201103
  Serious: Yes (Other)
  Sender: FDA-Public Use
  Company Number: US-HORIZON-TEP-0906-2020

PATIENT
  Age: 68 Year
  Sex: Male

DRUGS (5)
  1. TESTOSTERONE. [Concomitant]
     Active Substance: TESTOSTERONE
     Route: 042
  2. CITRULLINE [Concomitant]
     Active Substance: CITRULLINE
  3. SERTRALINE [Concomitant]
     Active Substance: SERTRALINE HYDROCHLORIDE
  4. TEPEZZA [Suspect]
     Active Substance: TEPROTUMUMAB-TRBW
     Indication: ENDOCRINE OPHTHALMOPATHY
     Dosage: ONCE EVERY THREE WEEKS
     Route: 042
     Dates: start: 20200417
  5. METHIMAZOLE. [Concomitant]
     Active Substance: METHIMAZOLE

REACTIONS (3)
  - Blood glucose increased [Not Recovered/Not Resolved]
  - Muscle spasms [Unknown]
  - Diabetes mellitus [Not Recovered/Not Resolved]

NARRATIVE: CASE EVENT DATE: 202004
